FAERS Safety Report 11450420 (Version 1)
Quarter: 2015Q3

REPORT INFORMATION
  Report Type: Spontaneous
  Country: US (occurrence: US)
  Receive Date: 20150903
  Receipt Date: 20150903
  Transmission Date: 20151125
  Serious: No
  Sender: FDA-Public Use
  Company Number: US-ROCHE-1056229

PATIENT
  Sex: Male

DRUGS (5)
  1. PEGASYS [Suspect]
     Active Substance: PEGINTERFERON ALFA-2A
     Indication: CHRONIC HEPATITIS C
     Dosage: 5TH TREATMENT
     Route: 058
     Dates: start: 20120102
  2. RIBASPHERE [Suspect]
     Active Substance: RIBAVIRIN
     Indication: CHRONIC HEPATITIS C
     Route: 048
     Dates: start: 20120102
  3. RIBASPHERE [Suspect]
     Active Substance: RIBAVIRIN
     Dosage: PRESCRIBED REDUCED DOSE
     Route: 065
  4. TELAPREVIR [Concomitant]
     Active Substance: TELAPREVIR
     Indication: CHRONIC HEPATITIS C
     Route: 065
     Dates: end: 20120327
  5. PEGASYS [Suspect]
     Active Substance: PEGINTERFERON ALFA-2A
     Dosage: DOSE REDUCED
     Route: 065

REACTIONS (4)
  - White blood cell count decreased [Recovering/Resolving]
  - Depression [Unknown]
  - Rash [Recovering/Resolving]
  - Anaemia [Unknown]
